FAERS Safety Report 11645735 (Version 1)
Quarter: 2015Q4

REPORT INFORMATION
  Report Type: Spontaneous
  Country: CH (occurrence: CH)
  Receive Date: 20151020
  Receipt Date: 20151020
  Transmission Date: 20160304
  Serious: Yes (Death, Other)
  Sender: FDA-Public Use
  Company Number: CH-GLAXOSMITHKLINE-CH2015145563

PATIENT
  Age: 1 Year
  Sex: Male
  Weight: 13 kg

DRUGS (21)
  1. ZOVIRAX [Suspect]
     Active Substance: ACYCLOVIR
     Dosage: 160 MG, TID
     Route: 048
     Dates: start: 20150615, end: 20150716
  2. VANCOCIN [Concomitant]
     Active Substance: VANCOMYCIN HYDROCHLORIDE
     Dosage: 3 MAL T?GLICH 220 MG
     Route: 042
     Dates: start: 20150615, end: 20150623
  3. VELCADE [Suspect]
     Active Substance: BORTEZOMIB
     Dosage: 0.65 MG IV
     Route: 042
     Dates: start: 20150626, end: 20150626
  4. RAPAMUNE [Suspect]
     Active Substance: SIROLIMUS
     Dosage: 1 MG T?GLICH PER SONDE
     Dates: start: 20150513, end: 20150704
  5. NIFEDIPIN RATIOPHARM [Suspect]
     Active Substance: NIFEDIPINE
     Dosage: 2 MAL T?GLICH 15 MG
     Route: 048
     Dates: start: 20150617, end: 20150707
  6. NOPIL [Suspect]
     Active Substance: SULFAMETHOXAZOLE\TRIMETHOPRIM
     Dosage: AN 3 AUFEINANDER FOLGENDEN TAGEN 2 MAL T?GLICH 180 MG
     Route: 048
     Dates: start: 20150615, end: 20150618
  7. DORMICUM [Concomitant]
     Active Substance: MIDAZOLAM\MIDAZOLAM HYDROCHLORIDE
     Dosage: SEIT DEM 15.6 ALS DAUERTROPF 0.2-0.3 MG/KG/H
     Route: 042
     Dates: start: 20150615, end: 20150716
  8. PROPANOLOL [Concomitant]
     Active Substance: PROPRANOLOL HYDROCHLORIDE
     Dosage: 3 MAL T?GLICH 2.5 MG
     Route: 048
     Dates: start: 20150617, end: 20150716
  9. SPIRICORT [Concomitant]
     Active Substance: PREDNISOLONE
     Dosage: 15 MG T?GLICH
     Route: 048
     Dates: start: 20150130, end: 20150704
  10. ACTILYSE [Concomitant]
     Active Substance: ALTEPLASE
     Dosage: 1.2 MG 1 MAL
     Route: 042
     Dates: start: 20150625, end: 20150625
  11. AMPHO MORONAL [Concomitant]
     Route: 048
     Dates: start: 20150707, end: 20150716
  12. VINCRISTIN [Concomitant]
     Active Substance: VINCRISTINE
     Dates: start: 20150417, end: 20150604
  13. MORPHINE HYDROCHLORIDE [Concomitant]
     Active Substance: MORPHINE HYDROCHLORIDE
     Dates: start: 20150615, end: 20150716
  14. ROCURONIUM [Concomitant]
     Active Substance: ROCURONIUM BROMIDE
     Dosage: SEIT DEM 15.6 IN DIVERSEN DOSIERUNGEN 0.6-1.2 MG/KG /H. ZWISCHENDURCH AUCH GESTOPPT.
     Route: 042
     Dates: start: 20150615, end: 20150630
  15. CELLCEPT [Suspect]
     Active Substance: MYCOPHENOLATE MOFETIL\MYCOPHENOLATE MOFETIL HYDROCHLORIDE
     Dosage: 3 X/D 220 MG
     Route: 048
     Dates: start: 20150513, end: 20150715
  16. OMEZOL-MEPHA [Suspect]
     Active Substance: OMEPRAZOLE
     Dosage: SEIT DEM 15.6 IV 10G 1 MAL T?GLICH
     Route: 042
     Dates: start: 20150615, end: 20150716
  17. SPORANOX [Suspect]
     Active Substance: ITRACONAZOLE
     Route: 048
     Dates: start: 20150222, end: 20150713
  18. MABTHERA [Suspect]
     Active Substance: RITUXIMAB
     Route: 041
     Dates: start: 20150428, end: 20150603
  19. CHLORALHYDRAT [Concomitant]
     Dosage: 4 MAL T?GLICH 260 MG
     Route: 054
     Dates: start: 20150615, end: 20150716
  20. RENITEN SUBMITE [Suspect]
     Active Substance: ENALAPRIL MALEATE
     Dates: start: 20150702, end: 20150707
  21. TRACRIUM [Concomitant]
     Active Substance: ATRACURIUM BESYLATE
     Dosage: 3 MAL 13 MG
     Route: 042
     Dates: start: 20150626, end: 20150626

REACTIONS (26)
  - Liver disorder [Fatal]
  - Renal failure [Fatal]
  - Pneumonia [None]
  - Oxygen saturation decreased [Fatal]
  - Hypertension [None]
  - Bronchial obstruction [None]
  - Cardiac failure [None]
  - Oedema peripheral [Fatal]
  - Microangiopathy [None]
  - Hepatic failure [None]
  - Acute respiratory distress syndrome [None]
  - Hyperkalaemia [None]
  - Multi-organ failure [None]
  - Aspiration [None]
  - Immune thrombocytopenic purpura [None]
  - Respiratory failure [None]
  - Electrocardiogram QRS complex prolonged [None]
  - Acidosis [None]
  - Septic shock [None]
  - Increased upper airway secretion [None]
  - Transaminases increased [Fatal]
  - Device related sepsis [None]
  - Bradycardia [None]
  - Hyperbilirubinaemia [Fatal]
  - Evans syndrome [None]
  - Arrhythmia [None]

NARRATIVE: CASE EVENT DATE: 20150614
